FAERS Safety Report 9386796 (Version 3)
Quarter: 2013Q3

REPORT INFORMATION
  Report Type: Spontaneous
  Country: US (occurrence: US)
  Receive Date: 20130708
  Receipt Date: 20130723
  Transmission Date: 20140515
  Serious: No
  Sender: FDA-Public Use
  Company Number: US-PFIZER INC-2013198174

PATIENT
  Sex: Male

DRUGS (1)
  1. SUTENT [Suspect]
     Dosage: 50 MG FOR 1 WEEK

REACTIONS (4)
  - Fatigue [Unknown]
  - Rash [Unknown]
  - Blister [Unknown]
  - Pain in extremity [Unknown]
